FAERS Safety Report 8662144 (Version 2)
Quarter: 2013Q4

REPORT INFORMATION
  Report Type: Spontaneous
  Country: US (occurrence: US)
  Receive Date: 20120712
  Receipt Date: 20131101
  Transmission Date: 20140711
  Serious: No
  Sender: FDA-Public Use
  Company Number: US-009507513-1207USA000735

PATIENT
  Age: 5 Year
  Sex: Female

DRUGS (1)
  1. SAPHRIS [Suspect]

REACTIONS (3)
  - Drug hypersensitivity [Unknown]
  - Rash [Unknown]
  - Drug administered to patient of inappropriate age [Unknown]
